FAERS Safety Report 7590596-3 (Version None)
Quarter: 2011Q3

REPORT INFORMATION
  Report Type: 
  Country: None (occurrence: None)
  Receive Date: 20110705
  Receipt Date: 20110628
  Transmission Date: 20111222
  Serious: Yes (Other)
  Sender: FDA-Public Use
  Company Number: US-PFIZER INC-2011038628

PATIENT
  Sex: Male
  Weight: 117.91 kg

DRUGS (10)
  1. METFORMIN [Concomitant]
     Indication: DIABETES MELLITUS
     Dosage: UNK
  2. CITALOPRAM [Concomitant]
     Dosage: UNK
  3. SUTENT [Suspect]
     Indication: METASTATIC RENAL CELL CARCINOMA
     Dosage: 50 MG, DAILY, FOR 28 DAYS EVERY 42 DAYS
     Route: 048
     Dates: start: 20110128, end: 20110223
  4. LISINOPRIL [Concomitant]
     Indication: HYPERTENSION
     Dosage: UNK
  5. LANTUS [Concomitant]
     Indication: DIABETES MELLITUS
     Dosage: UNK
  6. INSULIN GLULISINE [Concomitant]
     Indication: DIABETES MELLITUS
     Dosage: UNK
  7. DECADRON [Concomitant]
     Indication: BRAIN STEM SYNDROME
     Dosage: UNK
  8. SUTENT [Suspect]
     Dosage: 50 MG, 1X/DAY FOR 14 DAYS EVERY 21 DAYS
     Route: 048
     Dates: start: 20110224, end: 20110426
  9. SUTENT [Suspect]
     Dosage: 37.5 MG, DAILY X 14 DAYS Q 21 DAYS
     Dates: start: 20110427
  10. CRESTOR [Concomitant]
     Indication: BLOOD CHOLESTEROL INCREASED
     Dosage: UNK

REACTIONS (2)
  - CELLULITIS [None]
  - HYPOTENSION [None]
